FAERS Safety Report 12664200 (Version 2)
Quarter: 2016Q3

REPORT INFORMATION
  Report Type: Spontaneous
  Country: US (occurrence: US)
  Receive Date: 20160818
  Receipt Date: 20160920
  Transmission Date: 20161109
  Serious: Yes (Hospitalization, Disabling, Other)
  Sender: FDA-Public Use
  Company Number: US-009507513-1608USA004983

PATIENT
  Sex: Male
  Weight: 131 kg

DRUGS (5)
  1. COZAAR [Suspect]
     Active Substance: LOSARTAN POTASSIUM
     Indication: BLOOD PRESSURE MANAGEMENT
     Dosage: UNK
     Dates: end: 2016
  2. GLIPIZIDE. [Concomitant]
     Active Substance: GLIPIZIDE
     Indication: DIABETES MELLITUS
  3. AMLODIPINE [Suspect]
     Active Substance: AMLODIPINE BESYLATE
     Indication: BLOOD PRESSURE MANAGEMENT
     Dosage: UNK
  4. METFORMIN [Concomitant]
     Active Substance: METFORMIN HYDROCHLORIDE
     Indication: DIABETES MELLITUS
  5. CARVEDILOL. [Suspect]
     Active Substance: CARVEDILOL
     Indication: BLOOD PRESSURE MANAGEMENT
     Dosage: UNK

REACTIONS (12)
  - Wheelchair user [Not Recovered/Not Resolved]
  - Dyspnoea [Not Recovered/Not Resolved]
  - Blood pressure decreased [Unknown]
  - Pain [Unknown]
  - Diabetic neuropathy [Unknown]
  - Influenza [Unknown]
  - Urethral disorder [Unknown]
  - Peroneal nerve palsy [Unknown]
  - Catheter placement [Unknown]
  - Nasopharyngitis [Unknown]
  - Foot deformity [Unknown]
  - Malaise [Unknown]

NARRATIVE: CASE EVENT DATE: 2008
